FAERS Safety Report 4667158-0 (Version None)
Quarter: 2005Q2

REPORT INFORMATION
  Report Type: 
  Country: None (occurrence: None)
  Receive Date: 20050520
  Receipt Date: 20040504
  Transmission Date: 20051028
  Serious: Yes (Death, Other)
  Sender: FDA-Public Use
  Company Number: PHEH2004US04942

PATIENT
  Age: 85 Year
  Sex: Male
  Weight: 66 kg

DRUGS (18)
  1. VICODIN [Concomitant]
  2. LUPRON [Concomitant]
     Dosage: 30 MG, EVERY 4 MONTHS
     Route: 030
     Dates: start: 20030912
  3. OXYBUTYNIN [Concomitant]
     Dosage: 5 MG, UNK
  4. CASODEX [Concomitant]
     Dosage: 50 MG, QD
  5. SIMVASTATIN [Concomitant]
     Dosage: 20 MG, QD
  6. DIGITEK [Concomitant]
     Dosage: .125 MG, QD
  7. ATACAND [Concomitant]
     Dosage: 8 MG, BID
  8. PRILOSEC [Concomitant]
     Dosage: 20 MG, QD
  9. ECOTRIN [Concomitant]
     Dosage: UNK, QD
  10. PREDNISONE TAB [Concomitant]
     Dosage: 5 MG, BID
     Route: 048
     Dates: start: 20021001
  11. MITOXANTRONE [Concomitant]
     Indication: PROSTATE CANCER METASTATIC
     Dosage: 20 MG, TIW
     Dates: start: 20020927, end: 20030814
  12. TAXOTERE [Concomitant]
     Indication: PROSTATE CANCER METASTATIC
     Dosage: 50 MG, QW
     Dates: start: 20030925, end: 20031125
  13. EPOGEN [Concomitant]
     Dosage: 40000 UNITS, QW
     Dates: start: 20031010, end: 20031125
  14. BENADRYL COMPLEX [Concomitant]
  15. ZOFRAN [Concomitant]
     Dosage: 8 MG, UNK
     Route: 042
  16. DECADRON [Concomitant]
     Dosage: 10 MG, UNK
     Route: 042
  17. TAGAMET [Concomitant]
     Dosage: 300 MG, UNK
     Route: 042
  18. ZOMETA [Suspect]
     Indication: METASTASES TO BONE
     Dosage: 4 MG MONTHLY
     Route: 042
     Dates: start: 20020927, end: 20030925

REACTIONS (9)
  - BONE DEBRIDEMENT [None]
  - BONE DISORDER [None]
  - CONSTIPATION [None]
  - JAW DISORDER [None]
  - OSTEOMYELITIS CHRONIC [None]
  - OSTEONECROSIS [None]
  - PAIN [None]
  - PROSTATE CANCER METASTATIC [None]
  - TOOTH EXTRACTION [None]
